FAERS Safety Report 8239586-8 (Version None)
Quarter: 2012Q1

REPORT INFORMATION
  Report Type: 
  Country: None (occurrence: None)
  Receive Date: 20120328
  Receipt Date: 20120315
  Transmission Date: 20120608
  Serious: Yes (Hospitalization)
  Sender: FDA-Public Use
  Company Number: DE-UCBSA-046441

PATIENT
  Age: 22 Year
  Sex: Male

DRUGS (2)
  1. VIMPAT [Suspect]
     Dosage: 2X150 MG
  2. OXCARBAZEPINE [Suspect]

REACTIONS (2)
  - LETHARGY [None]
  - ELECTROENCEPHALOGRAM ABNORMAL [None]
